FAERS Safety Report 8525802-1 (Version None)
Quarter: 2012Q3

REPORT INFORMATION
  Report Type: 
  Country: None (occurrence: None)
  Receive Date: 20120720
  Receipt Date: 20120711
  Transmission Date: 20120928
  Serious: Yes (Other)
  Sender: FDA-Public Use
  Company Number: US-UCBSA-061548

PATIENT
  Age: 25 Year
  Sex: Female

DRUGS (3)
  1. SAPROPTERIN [Suspect]
     Dosage: LOWER THAN 700 MG
  2. SAPROPTERIN [Suspect]
     Dosage: DOSE: 20 MG/KG
  3. CARBIDOPA AND LEVODOPA [Suspect]
     Dosage: MAXIMAL DOSE 4?50 MG/100 MG

REACTIONS (1)
  - GENERAL PHYSICAL HEALTH DETERIORATION [None]
